FAERS Safety Report 8065912-9 (Version None)
Quarter: 2012Q1

REPORT INFORMATION
  Report Type: 
  Country: None (occurrence: None)
  Receive Date: 20120124
  Receipt Date: 20120112
  Transmission Date: 20120608
  Serious: Yes (Other)
  Sender: FDA-Public Use
  Company Number: SE-ELI_LILLY_AND_COMPANY-SE201201004196

PATIENT
  Age: 20 Year
  Sex: Female

DRUGS (3)
  1. STRATTERA [Suspect]
     Dosage: 80 MG, UNKNOWN
  2. STRATTERA [Suspect]
     Dosage: 40 MG, UNKNOWN
  3. STRATTERA [Suspect]
     Dosage: 40 MG, UNKNOWN
     Dates: start: 20110101

REACTIONS (2)
  - INTENTIONAL DRUG MISUSE [None]
  - SUICIDAL IDEATION [None]
